FAERS Safety Report 14082853 (Version 1)
Quarter: 2017Q4

REPORT INFORMATION
  Report Type: Spontaneous
  Country: US (occurrence: None)
  Receive Date: 20171013
  Receipt Date: 20171013
  Transmission Date: 20180321
  Serious: Yes (Life-Threatening)
  Sender: FDA-Public Use
  Company Number: None

PATIENT
  Age: 38 Year
  Sex: Male
  Weight: 58.74 kg

DRUGS (7)
  1. GLUCARPIDASE [Suspect]
     Active Substance: GLUCARPIDASE
     Indication: TOXICITY TO VARIOUS AGENTS
     Dosage: 3000 UNITS PRN IF SCR }=1.3 IV
     Route: 042
     Dates: start: 20170714
  2. ACYCLOVIR. [Concomitant]
     Active Substance: ACYCLOVIR
  3. SODIUM BICARB [Concomitant]
     Active Substance: SODIUM BICARBONATE
  4. LEUCOVORIN. [Concomitant]
     Active Substance: LEUCOVORIN
  5. D5W WITH NABICARB [Concomitant]
  6. MERCAPTOPURINE. [Concomitant]
     Active Substance: MERCAPTOPURINE
  7. ANTITHROMBIN III [Suspect]
     Active Substance: ANTITHROMBIN III HUMAN

REACTIONS (8)
  - Seizure [None]
  - Hypotension [None]
  - Blood creatinine increased [None]
  - Acute kidney injury [None]
  - Anaphylactic reaction [None]
  - Unresponsive to stimuli [None]
  - Cardio-respiratory arrest [None]
  - Pulse absent [None]

NARRATIVE: CASE EVENT DATE: 20170714
